FAERS Safety Report 6601476-1 (Version None)
Quarter: 2010Q1

REPORT INFORMATION
  Report Type: 
  Country: None (occurrence: None)
  Receive Date: 20100225
  Receipt Date: 20100118
  Transmission Date: 20100710
  Serious: Yes (Other)
  Sender: FDA-Public Use
  Company Number: US-JNJCH-2010002451

PATIENT
  Age: 79 Year
  Sex: Male
  Weight: 64.4 kg

DRUGS (2)
  1. BENADRYL [Suspect]
     Indication: SINUS DISORDER
     Dosage: TEXT:2 PILLS EVERY 4-6 HOURS TWICE DAILY
     Route: 048
  2. TYLENOL-500 [Suspect]
     Indication: BACK PAIN
     Dosage: TEXT:ONE TABLET TWICE DAILY
     Route: 065

REACTIONS (5)
  - GAIT DISTURBANCE [None]
  - NAUSEA [None]
  - OFF LABEL USE [None]
  - SKIN DISCOLOURATION [None]
  - VOMITING [None]
